FAERS Safety Report 8182366-2 (Version None)
Quarter: 2012Q1

REPORT INFORMATION
  Report Type: 
  Country: None (occurrence: None)
  Receive Date: 20120303
  Receipt Date: 20120223
  Transmission Date: 20120608
  Serious: Yes (Other)
  Sender: FDA-Public Use
  Company Number: US-AMGEN-USASP2012012221

PATIENT
  Age: 45 Year
  Sex: Male

DRUGS (1)
  1. ENBREL [Suspect]
     Indication: PSORIASIS
     Dosage: 50 MG, 2 TIMES/WK
     Dates: start: 20080101

REACTIONS (7)
  - DYSPNOEA [None]
  - SWELLING FACE [None]
  - EYE PRURITUS [None]
  - EYE SWELLING [None]
  - PRURITUS [None]
  - FOOD ALLERGY [None]
  - URTICARIA [None]
